FAERS Safety Report 6408881-7 (Version None)
Quarter: 2009Q4

REPORT INFORMATION
  Report Type: 
  Country: None (occurrence: None)
  Receive Date: 20091021
  Receipt Date: 20091008
  Transmission Date: 20100525
  Serious: Yes (Hospitalization)
  Sender: FDA-Public Use
  Company Number: KR-ROCHE-661851

PATIENT
  Sex: Male
  Weight: 70.1 kg

DRUGS (12)
  1. MYCOPHENOLATE MOFETIL [Suspect]
     Route: 048
     Dates: start: 20090110, end: 20090110
  2. MYCOPHENOLATE MOFETIL [Suspect]
     Dosage: 500 MG (1X/DAY) IN THE MORNING AND 1000 MG (1X/DAY) IN THE EVENING
     Route: 048
     Dates: start: 20090111, end: 20090111
  3. MYCOPHENOLATE MOFETIL [Suspect]
     Route: 048
     Dates: start: 20090112, end: 20090224
  4. MYCOPHENOLATE MOFETIL [Suspect]
     Route: 048
     Dates: start: 20090225, end: 20090303
  5. MYCOPHENOLATE MOFETIL [Suspect]
     Route: 048
     Dates: start: 20090304, end: 20090310
  6. MYCOPHENOLATE MOFETIL [Suspect]
     Route: 048
     Dates: start: 20090311, end: 20090922
  7. CYCLOSPORINE [Suspect]
     Route: 048
     Dates: start: 20090110, end: 20090713
  8. CYCLOSPORINE [Suspect]
     Route: 048
     Dates: start: 20090714, end: 20090922
  9. PREDNISOLONE [Concomitant]
     Dates: start: 20090110
  10. PRITOR [Concomitant]
     Dates: start: 20090303
  11. BENZBROMARONE [Concomitant]
     Dates: start: 20090310
  12. HEXAMIDINE [Concomitant]
     Dates: start: 20090110

REACTIONS (3)
  - BACTERAEMIA [None]
  - TRANSPLANT REJECTION [None]
  - URINARY TRACT INFECTION [None]
